FAERS Safety Report 21864645 (Version 3)
Quarter: 2023Q2

REPORT INFORMATION
  Report Type: Spontaneous
  Country: US (occurrence: US)
  Receive Date: 20230116
  Receipt Date: 20230420
  Transmission Date: 20230721
  Serious: No
  Sender: FDA-Public Use
  Company Number: US-BRISTOL-MYERS SQUIBB COMPANY-2023-006760

PATIENT
  Age: 66 Year
  Sex: Female

DRUGS (1)
  1. ORENCIA [Suspect]
     Active Substance: ABATACEPT
     Indication: Product used for unknown indication
     Dosage: DOSE: 125; FREQ: SUBCUTANEOUSLY ONCE EVERY 7 DAYS
     Route: 058

REACTIONS (5)
  - Fatigue [Unknown]
  - Dyspnoea [Unknown]
  - Pruritus [Unknown]
  - Heart rate irregular [Unknown]
  - Cardiac disorder [Unknown]
